FAERS Safety Report 6011054-3 (Version None)
Quarter: 2008Q4

REPORT INFORMATION
  Report Type: 
  Country: None (occurrence: None)
  Receive Date: 20081218
  Receipt Date: 20081212
  Transmission Date: 20090506
  Serious: Yes (Hospitalization)
  Sender: FDA-Public Use
  Company Number: US-GILEAD-2008-0019493

PATIENT
  Sex: Male

DRUGS (8)
  1. LETAIRIS [Suspect]
     Indication: PULMONARY ARTERIAL HYPERTENSION
     Route: 048
     Dates: start: 20081105, end: 20081112
  2. REVATIO [Concomitant]
  3. ALDACTONE [Concomitant]
  4. SPIRIVA [Concomitant]
  5. SYMBICORT [Concomitant]
  6. TRAMADOL HCL [Concomitant]
  7. OXYCONTIN [Concomitant]
  8. NEXIUM [Concomitant]

REACTIONS (3)
  - CONJUNCTIVITIS [None]
  - DRUG HYPERSENSITIVITY [None]
  - EYE OEDEMA [None]
